FAERS Safety Report 11741789 (Version 2)
Quarter: 2016Q1

REPORT INFORMATION
  Report Type: Spontaneous
  Country: US (occurrence: US)
  Receive Date: 20151116
  Receipt Date: 20160126
  Transmission Date: 20160525
  Serious: Yes (Other)
  Sender: FDA-Public Use
  Company Number: US-WATSON-2015-24382

PATIENT
  Sex: Male

DRUGS (3)
  1. ANDROGEL [Suspect]
     Active Substance: TESTOSTERONE
     Indication: ANDROGEN REPLACEMENT THERAPY
     Dosage: UNKNOWN
     Route: 065
     Dates: start: 20100312, end: 20130915
  2. ANDRODERM [Suspect]
     Active Substance: TESTOSTERONE
     Indication: ANDROGEN REPLACEMENT THERAPY
     Dosage: UNKNOWN
     Route: 065
     Dates: start: 20100312, end: 20130915
  3. AXIRON [Suspect]
     Active Substance: TESTOSTERONE
     Indication: ANDROGEN REPLACEMENT THERAPY
     Dosage: UNKNOWN
     Route: 065
     Dates: start: 20100312, end: 20130915

REACTIONS (6)
  - Cardiovascular disorder [Unknown]
  - Myocardial infarction [Unknown]
  - Fear [Unknown]
  - Emotional distress [Unknown]
  - Physical disability [Unknown]
  - Anhedonia [Unknown]

NARRATIVE: CASE EVENT DATE: 20110131
